FAERS Safety Report 6298651-5 (Version None)
Quarter: 2009Q3

REPORT INFORMATION
  Report Type: 
  Country: None (occurrence: None)
  Receive Date: 20090804
  Receipt Date: 20090727
  Transmission Date: 20100115
  Serious: Yes (Hospitalization)
  Sender: FDA-Public Use
  Company Number: CHPA2009US15819

PATIENT
  Age: 66 Year
  Sex: Female

DRUGS (2)
  1. GAS-X ULTRA STRENGTH (SIMETHICONE) SOFT GELATIN CAPSULE [Suspect]
     Indication: ABDOMINAL DISTENSION
     Dosage: 180 MG, ONCE/SINGLE, ORAL
     Route: 048
     Dates: start: 20090720, end: 20090720
  2. GAS-X ULTRA STRENGTH (SIMETHICONE) SOFT GELATIN CAPSULE [Suspect]
     Indication: FLATULENCE
     Dosage: 180 MG, ONCE/SINGLE, ORAL
     Route: 048
     Dates: start: 20090720, end: 20090720

REACTIONS (1)
  - APPENDICITIS [None]
